FAERS Safety Report 25730496 (Version 1)
Quarter: 2025Q3

REPORT INFORMATION
  Report Type: Spontaneous
  Country: US (occurrence: US)
  Receive Date: 20250827
  Receipt Date: 20250827
  Transmission Date: 20251020
  Serious: No
  Sender: ELI LILLY AND COMPANY
  Company Number: US-ELI_LILLY_AND_COMPANY-US202508022637

PATIENT
  Age: 52 Year
  Sex: Female

DRUGS (1)
  1. VERZENIO [Suspect]
     Active Substance: ABEMACICLIB
     Indication: Metastases to breast
     Dosage: 100 MG, BID
     Route: 048

REACTIONS (4)
  - Dyspnoea [Unknown]
  - Off label use [Unknown]
  - Arthralgia [Unknown]
  - Fatigue [Unknown]
